FAERS Safety Report 5785704-0 (Version None)
Quarter: 2008Q2

REPORT INFORMATION
  Report Type: 
  Country: None (occurrence: None)
  Receive Date: 20080605
  Receipt Date: 20080303
  Transmission Date: 20081010
  Serious: No
  Sender: FDA-Public Use
  Company Number: A0711291A

PATIENT
  Age: 46 Year
  Sex: Female

DRUGS (1)
  1. ALLI [Suspect]
     Route: 048
     Dates: start: 20080217, end: 20080219

REACTIONS (5)
  - HYPERSENSITIVITY [None]
  - INSOMNIA [None]
  - PAIN [None]
  - PRURITUS GENERALISED [None]
  - SOMNOLENCE [None]
